FAERS Safety Report 14255410 (Version 3)
Quarter: 2018Q1

REPORT INFORMATION
  Report Type: Spontaneous
  Country: US (occurrence: US)
  Receive Date: 20171206
  Receipt Date: 20180220
  Transmission Date: 20180508
  Serious: No
  Sender: FDA-Public Use
  Company Number: US-LEXICON PHARMACEUTICALS, INC-17-1606-01166

PATIENT
  Age: 55 Year
  Sex: Female

DRUGS (8)
  1. TELOTRISTAT ETHYL [Suspect]
     Active Substance: TELOTRISTAT ETHYL
     Indication: CARCINOID TUMOUR
     Route: 048
     Dates: start: 20171101, end: 20171106
  2. LANREOTIDE [Concomitant]
     Active Substance: LANREOTIDE
  3. ONDANSETRON [Concomitant]
     Active Substance: ONDANSETRON
  4. HYDROMORPHONE [Concomitant]
     Active Substance: HYDROMORPHONE
  5. QUETIAPINE. [Concomitant]
     Active Substance: QUETIAPINE
  6. FENTANYL. [Concomitant]
     Active Substance: FENTANYL
  7. PANTOPRAZOLE [Concomitant]
     Active Substance: PANTOPRAZOLE
  8. ESCITALOPRAM [Concomitant]
     Active Substance: ESCITALOPRAM OXALATE

REACTIONS (1)
  - Abdominal pain [Not Recovered/Not Resolved]

NARRATIVE: CASE EVENT DATE: 20171106
